FAERS Safety Report 14672892 (Version 1)
Quarter: 2018Q1

REPORT INFORMATION
  Report Type: Report from Study
  Country: None (occurrence: GB)
  Receive Date: 20180323
  Receipt Date: 20180323
  Transmission Date: 20180509
  Serious: Yes (Other)
  Sender: FDA-Public Use
  Company Number: GB-ABBVIE-18K-167-2295636-00

PATIENT
  Sex: Male

DRUGS (1)
  1. DUODOPA [Suspect]
     Active Substance: CARBIDOPA\LEVODOPA
     Indication: PARKINSON^S DISEASE
     Dosage: ONE CASSETTE DAILY: 100ML CASSETTE
     Route: 050

REACTIONS (4)
  - Constipation [Recovered/Resolved]
  - Drug effect incomplete [Unknown]
  - Gastrostomy [Unknown]
  - Seizure [Unknown]

NARRATIVE: CASE EVENT DATE: 2018
